FAERS Safety Report 7772766-4 (Version None)
Quarter: 2011Q3

REPORT INFORMATION
  Report Type: 
  Country: None (occurrence: None)
  Receive Date: 20110922
  Receipt Date: 20110623
  Transmission Date: 20111222
  Serious: No
  Sender: FDA-Public Use
  Company Number: US-ASTRAZENECA-2011SE38007

PATIENT
  Age: 40 Year
  Sex: Male

DRUGS (5)
  1. ZOLOFT [Concomitant]
     Indication: DEPRESSION
  2. SEROQUEL [Suspect]
     Indication: SLEEP DISORDER
     Route: 048
  3. SEROQUEL [Suspect]
     Indication: DEPRESSION
     Route: 048
  4. SEROQUEL [Suspect]
     Route: 048
     Dates: start: 20110608
  5. SEROQUEL [Suspect]
     Route: 048
     Dates: start: 20110608

REACTIONS (3)
  - NERVOUSNESS [None]
  - ANXIETY [None]
  - FEELING JITTERY [None]
